FAERS Safety Report 4688580-2 (Version None)
Quarter: 2005Q2

REPORT INFORMATION
  Report Type: 
  Country: None (occurrence: None)
  Receive Date: 20050609
  Receipt Date: 20050601
  Transmission Date: 20051028
  Serious: Yes (Hospitalization)
  Sender: FDA-Public Use
  Company Number: 2005BH000038

PATIENT

DRUGS (1)
  1. PROPOFOL [Suspect]

REACTIONS (3)
  - ANAESTHETIC COMPLICATION [None]
  - ASPIRATION [None]
  - PROCEDURAL COMPLICATION [None]
